FAERS Safety Report 5030461-9 (Version None)
Quarter: 2006Q2

REPORT INFORMATION
  Report Type: 
  Country: None (occurrence: None)
  Receive Date: 20060620
  Receipt Date: 20060616
  Transmission Date: 20061013
  Serious: Yes (Hospitalization)
  Sender: FDA-Public Use
  Company Number: US-BOEHRINGER INGELHEIM PHARMACEUTICALS, INC.-2006-BP-06893BP

PATIENT
  Sex: Female

DRUGS (7)
  1. SPIRIVA [Suspect]
     Indication: CHRONIC OBSTRUCTIVE PULMONARY DISEASE
     Route: 055
     Dates: start: 20060501
  2. XANAX [Concomitant]
  3. PAXIL [Concomitant]
  4. NORVASC [Concomitant]
  5. LIPITOR [Concomitant]
  6. COZAAR [Concomitant]
  7. VITAMINS [Concomitant]

REACTIONS (1)
  - ABDOMINAL MASS [None]
